FAERS Safety Report 4784700-X (Version None)
Quarter: 2005Q3

REPORT INFORMATION
  Report Type: 
  Country: None (occurrence: None)
  Receive Date: 20050930
  Receipt Date: 20050920
  Transmission Date: 20060218
  Serious: Yes (Life-Threatening, Hospitalization)
  Sender: FDA-Public Use
  Company Number: US-BRISTOL-MYERS SQUIBB COMPANY-13116769

PATIENT
  Age: 56 Year
  Sex: Male

DRUGS (14)
  1. CARBOPLATIN [Suspect]
     Indication: LUNG CANCER METASTATIC
     Route: 042
     Dates: start: 20020226, end: 20020226
  2. CETUXIMAB [Suspect]
     Indication: LUNG CANCER METASTATIC
     Route: 042
     Dates: start: 20020226, end: 20020226
  3. GEMCITABINE [Suspect]
     Indication: LUNG CANCER METASTATIC
     Route: 042
     Dates: start: 20020226, end: 20020226
  4. METOCLOPRAMIDE [Concomitant]
  5. PROTEIN SUPPLEMENT [Concomitant]
  6. ATROVENT [Concomitant]
  7. VENTOLIN [Concomitant]
  8. FLOVENT [Concomitant]
  9. FLOMAX [Concomitant]
  10. PROTONIX [Concomitant]
  11. MEGACE [Concomitant]
  12. ATIVAN [Concomitant]
     Indication: NAUSEA
  13. BENADRYL [Concomitant]
     Indication: NAUSEA
  14. HALDOL [Concomitant]
     Indication: NAUSEA

REACTIONS (2)
  - DEEP VEIN THROMBOSIS [None]
  - PULMONARY EMBOLISM [None]
